FAERS Safety Report 9083879 (Version 1)
Quarter: 2013Q1

REPORT INFORMATION
  Report Type: Report from Study
  Country: US (occurrence: US)
  Receive Date: 20130130
  Receipt Date: 20130130
  Transmission Date: 20140127
  Serious: No
  Sender: FDA-Public Use
  Company Number: US-ABBOTT-12P-163-0984198-00

PATIENT
  Age: 22 Year
  Sex: Male

DRUGS (3)
  1. HUMIRA [Suspect]
     Indication: SPONDYLITIS
     Route: 058
     Dates: start: 201103
  2. INDOMETHACIN [Concomitant]
     Indication: ARTHRITIS
  3. SULFASALAZINE [Concomitant]
     Indication: ARTHRITIS

REACTIONS (3)
  - Drug dose omission [Recovered/Resolved]
  - Injection site pain [Recovered/Resolved]
  - Incorrect dose administered [Recovered/Resolved]
